FAERS Safety Report 22805151 (Version 4)
Quarter: 2023Q4

REPORT INFORMATION
  Report Type: Report from Study
  Country: CA (occurrence: CA)
  Receive Date: 20230809
  Receipt Date: 20231024
  Transmission Date: 20240110
  Serious: Yes (Other)
  Sender: FDA-Public Use
  Company Number: CA-TAIHOP-2023-004995

PATIENT
  Age: 76 Year
  Sex: Male

DRUGS (1)
  1. LONSURF [Suspect]
     Active Substance: TIPIRACIL HYDROCHLORIDE\TRIFLURIDINE
     Indication: Colorectal cancer metastatic
     Dosage: CURRENT CYCLE UNKNOWN
     Route: 048
     Dates: start: 20230522

REACTIONS (12)
  - Penile haemorrhage [Unknown]
  - Erythema [Unknown]
  - Eyelid margin crusting [Unknown]
  - Pollakiuria [Unknown]
  - Abdominal pain lower [Unknown]
  - Chest pain [Recovering/Resolving]
  - Cough [Unknown]
  - Disease progression [Unknown]
  - White blood cell count decreased [Unknown]
  - Neutropenia [Unknown]
  - Nausea [Unknown]
  - Decreased appetite [Unknown]
